FAERS Safety Report 6404226-7 (Version None)
Quarter: 2009Q4

REPORT INFORMATION
  Report Type: 
  Country: None (occurrence: None)
  Receive Date: 20091016
  Receipt Date: 20091009
  Transmission Date: 20100525
  Serious: Yes (Other)
  Sender: FDA-Public Use
  Company Number: ZA-JNJFOC-20091001690

PATIENT
  Sex: Male

DRUGS (2)
  1. NIZORAL [Suspect]
     Route: 065
  2. NIZORAL [Suspect]
     Indication: DANDRUFF
     Route: 065

REACTIONS (2)
  - DRUG INEFFECTIVE [None]
  - PRODUCT COUNTERFEIT [None]
